FAERS Safety Report 9229621 (Version 1)
Quarter: 2013Q2

REPORT INFORMATION
  Report Type: Spontaneous
  Country: ZA (occurrence: ZA)
  Receive Date: 20130414
  Receipt Date: 20130414
  Transmission Date: 20140414
  Serious: Yes (Death, Hospitalization, Other)
  Sender: FDA-Public Use
  Company Number: ZA-009507513-1304ZAF002908

PATIENT
  Age: 30 Year
  Sex: Male
  Weight: 130 kg

DRUGS (3)
  1. CELESTONE SOLUSPAN [Suspect]
     Indication: EAR INFECTION
     Dosage: 2 ML
     Route: 030
  2. ZITHROMAX [Concomitant]
     Dosage: 500 MG
     Route: 048
  3. VOLTAREN [Concomitant]
     Dosage: 75 MG STAT

REACTIONS (3)
  - H1N1 influenza [Fatal]
  - Pneumonia [Not Recovered/Not Resolved]
  - Ear infection [Unknown]
